FAERS Safety Report 18888271 (Version 1)
Quarter: 2021Q1

REPORT INFORMATION
  Report Type: Spontaneous
  Country: US (occurrence: US)
  Receive Date: 20210212
  Receipt Date: 20210212
  Transmission Date: 20210420
  Serious: Yes (Other)
  Sender: FDA-Public Use
  Company Number: US-TEVA-2021-US-1877125

PATIENT
  Age: 81 Year
  Sex: Female
  Weight: 78.93 kg

DRUGS (5)
  1. LEVALBUTEROL TARTRATE. [Concomitant]
     Active Substance: LEVALBUTEROL TARTRATE
  2. QVAR REDIHALER [Suspect]
     Active Substance: BECLOMETHASONE DIPROPIONATE
     Indication: ASTHMA
     Dosage: 2 PUFFS IN THE MORNING AND 2 PUFFS AT NIGHT 8?10 YEARS
     Route: 065
  3. DILTIAZEM ER [Concomitant]
     Active Substance: DILTIAZEM
     Indication: HEART RATE
     Route: 065
  4. ELIQUIS [Concomitant]
     Active Substance: APIXABAN
     Dosage: ONCE IN THE MORNING AND ONCE AT NIGHT
  5. DIGOXIN. [Concomitant]
     Active Substance: DIGOXIN

REACTIONS (2)
  - Cardiac failure [Unknown]
  - Myocardial infarction [Unknown]
